FAERS Safety Report 25976344 (Version 1)
Quarter: 2025Q4

REPORT INFORMATION
  Report Type: Spontaneous
  Country: EU (occurrence: EU)
  Receive Date: 20251029
  Receipt Date: 20251029
  Transmission Date: 20260118
  Serious: Yes (Hospitalization)
  Sender: PFIZER
  Company Number: None

PATIENT
  Age: 20 Year
  Sex: Female

DRUGS (2)
  1. METHYLPREDNISOLONE SODIUM SUCCINATE [Suspect]
     Active Substance: METHYLPREDNISOLONE SODIUM SUCCINATE
     Indication: Optic neuritis
     Dosage: 1 G, 1X/DAY
     Route: 042
     Dates: start: 20250308, end: 20250312
  2. PREDNISONE [Suspect]
     Active Substance: PREDNISONE
     Indication: Optic neuritis
     Dosage: 60 MG, 1X/DAY
     Route: 048
     Dates: start: 20250313, end: 20250509

REACTIONS (4)
  - Hepatic cytolysis [Recovering/Resolving]
  - Hypothyroidism [Recovered/Resolved]
  - Leukocytosis [Recovering/Resolving]
  - Off label use [Unknown]

NARRATIVE: CASE EVENT DATE: 20250308
